FAERS Safety Report 8401059-7 (Version None)
Quarter: 2012Q2

REPORT INFORMATION
  Report Type: 
  Country: None (occurrence: None)
  Receive Date: 20120530
  Receipt Date: 20120530
  Transmission Date: 20120825
  Serious: Yes (Hospitalization, Disabling)
  Sender: FDA-Public Use
  Company Number: None

PATIENT
  Age: 81 Year
  Sex: Female
  Weight: 43.0917 kg

DRUGS (1)
  1. LEVOFLOXACIN [Suspect]
     Indication: CYSTITIS
     Dosage: 500MG ONCE DAILY PO
     Route: 048
     Dates: start: 20120404, end: 20120406

REACTIONS (8)
  - CRYING [None]
  - CLAUSTROPHOBIA [None]
  - ASTHENIA [None]
  - ACTIVITIES OF DAILY LIVING IMPAIRED [None]
  - ABASIA [None]
  - HYPERVENTILATION [None]
  - DIPLEGIA [None]
  - EMOTIONAL DISORDER [None]
